FAERS Safety Report 9782031 (Version 2)
Quarter: 2014Q1

REPORT INFORMATION
  Report Type: Spontaneous
  Country: PL (occurrence: PL)
  Receive Date: 20131225
  Receipt Date: 20140114
  Transmission Date: 20141002
  Serious: Yes (Other)
  Sender: FDA-Public Use
  Company Number: PL-ROCHE-1325615

PATIENT
  Age: 38 Year
  Sex: Female

DRUGS (9)
  1. XOLAIR [Suspect]
     Indication: ASTHMA
     Route: 058
     Dates: start: 20130513
  2. XOLAIR [Suspect]
     Route: 058
  3. SYMBICORT [Concomitant]
     Route: 065
  4. ALVESCO [Concomitant]
     Route: 065
  5. SPIRIVA [Concomitant]
  6. POLCORTOLONE [Concomitant]
  7. THEOSPIREX [Concomitant]
  8. ASMENOL [Concomitant]
  9. RUPAFIN [Concomitant]
     Route: 065

REACTIONS (1)
  - Illusion [Not Recovered/Not Resolved]
